FAERS Safety Report 6073900-7 (Version None)
Quarter: 2009Q1

REPORT INFORMATION
  Report Type: 
  Country: None (occurrence: None)
  Receive Date: 20090211
  Receipt Date: 20081212
  Transmission Date: 20090719
  Serious: Yes (Disabling, Other)
  Sender: FDA-Public Use
  Company Number: GB-MERCK-0812GBR00071

PATIENT
  Age: 25 Year
  Sex: Male
  Weight: 75 kg

DRUGS (1)
  1. SINGULAIR [Suspect]
     Dates: start: 20050105, end: 20050201

REACTIONS (1)
  - DEPRESSION SUICIDAL [None]
